FAERS Safety Report 8045275-5 (Version None)
Quarter: 2012Q1

REPORT INFORMATION
  Report Type: 
  Country: None (occurrence: None)
  Receive Date: 20120113
  Receipt Date: 20120109
  Transmission Date: 20120608
  Serious: Yes (Other)
  Sender: FDA-Public Use
  Company Number: BR-PFIZER INC-2012006944

PATIENT
  Age: 47 Year
  Sex: Female

DRUGS (6)
  1. INNEOV [Concomitant]
     Indication: VITAMIN SUPPLEMENTATION
     Dosage: UNK
  2. VITAMIN E [Concomitant]
     Dosage: UNK
  3. MODAFINIL [Concomitant]
     Indication: SOMNOLENCE
     Dosage: UNK
  4. LYRICA [Suspect]
     Indication: ARTHRALGIA
     Dosage: 75 MG (ONE CAPSULE), 1X/DAY
     Route: 048
     Dates: start: 20120107, end: 20120107
  5. SUPRELLE [Concomitant]
     Indication: AMENORRHOEA
     Dosage: UNK
  6. LYRICA [Suspect]
     Indication: PAIN IN EXTREMITY
     Dosage: 75 MG (ONE CAPSULE), 1X/DAY
     Route: 048
     Dates: start: 20111228, end: 20111228

REACTIONS (4)
  - HYPERSOMNIA [None]
  - ABNORMAL BEHAVIOUR [None]
  - DIZZINESS [None]
  - SENSORY DISTURBANCE [None]
